FAERS Safety Report 20415180 (Version 1)
Quarter: 2022Q1

REPORT INFORMATION
  Report Type: Spontaneous
  Country: CA (occurrence: CA)
  Receive Date: 20220202
  Receipt Date: 20220202
  Transmission Date: 20220423
  Serious: Yes (Hospitalization, Other)
  Sender: FDA-Public Use
  Company Number: CA-JNJFOC-20220155642

PATIENT
  Age: 61 Year
  Sex: Female
  Weight: 85 kg

DRUGS (1)
  1. REMICADE [Suspect]
     Active Substance: INFLIXIMAB
     Indication: Neurosarcoidosis
     Route: 042

REACTIONS (6)
  - Loss of consciousness [Unknown]
  - Syncope [Unknown]
  - Weight increased [Unknown]
  - Seizure [Unknown]
  - Off label use [Unknown]
  - Product use in unapproved indication [Unknown]
